FAERS Safety Report 13814670 (Version 2)
Quarter: 2017Q3

REPORT INFORMATION
  Report Type: Report from Study
  Country: US (occurrence: US)
  Receive Date: 20170731
  Receipt Date: 20170824
  Transmission Date: 20171127
  Serious: Yes (Hospitalization, Other)
  Sender: FDA-Public Use
  Company Number: US-PFIZER INC-2017318494

PATIENT
  Age: 59 Year
  Sex: Female

DRUGS (1)
  1. IBRANCE [Suspect]
     Active Substance: PALBOCICLIB
     Indication: BREAST CANCER METASTATIC
     Dosage: 125 MG, CYCLIC (DAILY/ 21 DAYS ON AND 7 DAYS OFF )
     Route: 048
     Dates: start: 20170621, end: 201708

REACTIONS (9)
  - Fatigue [Unknown]
  - Cough [Unknown]
  - Neoplasm progression [Unknown]
  - Nausea [Unknown]
  - Peripheral swelling [Unknown]
  - Hypokalaemia [Unknown]
  - Emotional disorder [Unknown]
  - Diarrhoea [Unknown]
  - Aphasia [Unknown]

NARRATIVE: CASE EVENT DATE: 2017
